FAERS Safety Report 9464046 (Version 15)
Quarter: 2015Q3

REPORT INFORMATION
  Report Type: Report from Study
  Country: US (occurrence: US)
  Receive Date: 20130819
  Receipt Date: 20150908
  Transmission Date: 20151125
  Serious: Yes (Hospitalization, Other)
  Sender: FDA-Public Use
  Company Number: US-SANOFI-AVENTIS-2013SA065909

PATIENT
  Age: 68 Year
  Sex: Female
  Weight: 56 kg

DRUGS (6)
  1. AUBAGIO [Suspect]
     Active Substance: TERIFLUNOMIDE
     Indication: RELAPSING-REMITTING MULTIPLE SCLEROSIS
     Route: 048
     Dates: start: 20130302
  2. AUBAGIO [Suspect]
     Active Substance: TERIFLUNOMIDE
     Indication: RELAPSING-REMITTING MULTIPLE SCLEROSIS
     Route: 048
     Dates: start: 20130302
  3. DOXYCYCLINE. [Concomitant]
     Active Substance: DOXYCYCLINE
     Indication: ROSACEA
     Route: 065
  4. COLESTIPOL [Concomitant]
     Active Substance: COLESTIPOL
     Indication: FUNCTIONAL GASTROINTESTINAL DISORDER
     Dosage: IN MORNING
  5. TRAZODONE [Concomitant]
     Active Substance: TRAZODONE HYDROCHLORIDE
     Indication: DEPRESSION
     Dosage: STARTED 20 YEARS AT 25 MG
     Route: 065
  6. AUBAGIO [Suspect]
     Active Substance: TERIFLUNOMIDE
     Indication: RELAPSING-REMITTING MULTIPLE SCLEROSIS
     Route: 048
     Dates: start: 20141118

REACTIONS (35)
  - Cholelithiasis [Recovered/Resolved]
  - Foot fracture [Unknown]
  - Stress [Unknown]
  - Depression [Unknown]
  - Flatulence [Unknown]
  - Paraesthesia [Unknown]
  - Micturition urgency [Unknown]
  - Pollakiuria [Unknown]
  - Contusion [Unknown]
  - Arthralgia [Unknown]
  - Defaecation urgency [Unknown]
  - Condition aggravated [Unknown]
  - Multiple sclerosis [Recovered/Resolved]
  - Fall [Unknown]
  - Ligament sprain [Unknown]
  - Nasopharyngitis [Unknown]
  - Memory impairment [Recovered/Resolved]
  - Heart rate increased [Unknown]
  - Incontinence [Unknown]
  - Hair texture abnormal [Unknown]
  - Dumping syndrome [Recovered/Resolved]
  - Multiple sclerosis relapse [Unknown]
  - Band sensation [Unknown]
  - Hypoaesthesia [Unknown]
  - Non-cardiac chest pain [Recovered/Resolved]
  - Musculoskeletal chest pain [Unknown]
  - Anxiety [Unknown]
  - Eating disorder [Unknown]
  - Diarrhoea [Not Recovered/Not Resolved]
  - Drug hypersensitivity [Unknown]
  - Liver function test abnormal [Unknown]
  - Burning sensation [Recovered/Resolved]
  - Incontinence [Not Recovered/Not Resolved]
  - Nasal congestion [Unknown]
  - Alopecia [Unknown]

NARRATIVE: CASE EVENT DATE: 201303
